FAERS Safety Report 8473847-2 (Version None)
Quarter: 2012Q2

REPORT INFORMATION
  Report Type: 
  Country: None (occurrence: None)
  Receive Date: 20120628
  Receipt Date: 20120123
  Transmission Date: 20120825
  Serious: Yes (Death)
  Sender: FDA-Public Use
  Company Number: US-MYLANLABS-2011S1026153

PATIENT
  Age: 62 Year
  Sex: Female
  Weight: 85.28 kg

DRUGS (8)
  1. KEPPRA [Concomitant]
  2. CLOZAPINE [Suspect]
     Route: 048
     Dates: end: 20111101
  3. GABAPENTIN [Concomitant]
  4. DOCUSATE [Concomitant]
  5. ZOLOFT [Concomitant]
  6. LEVOTHYROXINE [Concomitant]
  7. OYSTER SHELL CACIUM WITH VITAMIN D [Concomitant]
  8. PANTOPRAZOLE [Concomitant]

REACTIONS (2)
  - THYROID CANCER [None]
  - LUNG NEOPLASM MALIGNANT [None]
